FAERS Safety Report 8837371 (Version 1)
Quarter: 2012Q4

REPORT INFORMATION
  Report Type: 
  Country: JP (occurrence: JP)
  Receive Date: 20121012
  Receipt Date: 20121012
  Transmission Date: 20130627
  Serious: Yes (Disabling)
  Sender: FDA-Public Use
  Company Number: JP-ELI_LILLY_AND_COMPANY-JP201210000717

PATIENT
  Sex: Male

DRUGS (4)
  1. ALIMTA [Suspect]
     Indication: NON-SMALL CELL LUNG CANCER
     Dosage: 500 mg/m2, UNK
     Route: 042
     Dates: start: 20120913
  2. CISPLATIN [Concomitant]
     Indication: NON-SMALL CELL LUNG CANCER
     Dosage: 75 mg/m2, UNK
     Route: 042
     Dates: start: 20120913
  3. VITAMIN B12 [Concomitant]
     Dosage: UNK
     Route: 030
     Dates: start: 201209
  4. PANVITAN [Concomitant]
     Dosage: UNK
     Route: 048
     Dates: start: 201209

REACTIONS (1)
  - Hypoaesthesia [Not Recovered/Not Resolved]
